FAERS Safety Report 13493617 (Version 1)
Quarter: 2017Q2

REPORT INFORMATION
  Report Type: Spontaneous
  Country: US (occurrence: US)
  Receive Date: 20170427
  Receipt Date: 20170427
  Transmission Date: 20170830
  Serious: No
  Sender: FDA-Public Use
  Company Number: US-ROCHE-1407511

PATIENT
  Sex: Male

DRUGS (2)
  1. ERIVEDGE [Suspect]
     Active Substance: VISMODEGIB
     Indication: PRODUCT USED FOR UNKNOWN INDICATION
     Route: 048
  2. ALBUTEROL. [Concomitant]
     Active Substance: ALBUTEROL
     Indication: ASTHMA

REACTIONS (8)
  - Poor quality sleep [Unknown]
  - Pyrexia [Unknown]
  - Accidental exposure to product [Unknown]
  - Muscle twitching [Unknown]
  - Chills [Unknown]
  - Irritability [Unknown]
  - Teething [Unknown]
  - Muscle spasms [Unknown]
